FAERS Safety Report 14836062 (Version 1)
Quarter: 2018Q2

REPORT INFORMATION
  Report Type: Spontaneous
  Country: US (occurrence: US)
  Receive Date: 20180413
  Receipt Date: 20180413
  Transmission Date: 20180711
  Serious: Yes (Other)
  Sender: FDA-Public Use
  Company Number: None

PATIENT

DRUGS (1)
  1. AQUAFRESH EXTREME CLEAN WHITENING ACTION [Suspect]
     Active Substance: SODIUM FLUORIDE
     Indication: PRODUCT USED FOR UNKNOWN INDICATION
     Dates: start: 20180209, end: 20180322

REACTIONS (4)
  - Hypoaesthesia oral [None]
  - Exfoliative rash [None]
  - Rash erythematous [None]
  - Oral discomfort [None]

NARRATIVE: CASE EVENT DATE: 20180223
